FAERS Safety Report 24696152 (Version 1)
Quarter: 2024Q4

REPORT INFORMATION
  Report Type: Spontaneous
  Country: CA (occurrence: CA)
  Receive Date: 20241204
  Receipt Date: 20241204
  Transmission Date: 20250114
  Serious: Yes (Life-Threatening, Hospitalization, Other)
  Sender: TEVA
  Company Number: CA-TEVA-VS-3271508

PATIENT
  Age: 10 Year
  Sex: Female

DRUGS (17)
  1. VINCRISTINE SULFATE [Suspect]
     Active Substance: VINCRISTINE SULFATE
     Indication: Lymphangioma
     Dosage: DOSE FORM: NOT SPECIFIED
     Route: 042
  2. VINCRISTINE SULFATE [Suspect]
     Active Substance: VINCRISTINE SULFATE
     Indication: Lymphangioma
     Route: 042
  3. INTERFERON [Concomitant]
     Active Substance: INTERFERON
     Indication: Lymphangioma
     Route: 042
  4. ALCOHOL [Concomitant]
     Active Substance: ALCOHOL
     Indication: Product used for unknown indication
     Route: 065
  5. SIROLIMUS [Concomitant]
     Active Substance: SIROLIMUS
     Indication: Lymphangioma
     Route: 048
  6. SIROLIMUS [Concomitant]
     Active Substance: SIROLIMUS
     Indication: Lymphangioma
     Route: 048
  7. SIROLIMUS [Concomitant]
     Active Substance: SIROLIMUS
     Indication: Lymphangioma
     Route: 048
  8. SIROLIMUS [Concomitant]
     Active Substance: SIROLIMUS
     Indication: Lymphangioma
     Dosage: DOSE FORM: NOT SPECIFIED
     Route: 048
  9. PROPRANOLOL [Concomitant]
     Active Substance: PROPRANOLOL HYDROCHLORIDE
     Indication: Product used for unknown indication
     Dosage: DOSE FORM: NOT SPECIFIED
     Route: 048
  10. BLEOMYCIN [Concomitant]
     Active Substance: BLEOMYCIN SULFATE
     Indication: Lymphangioma
     Dosage: TIME INTERVAL: CYCLICAL
     Route: 065
  11. SOTRADECOL [Concomitant]
     Active Substance: SODIUM TETRADECYL SULFATE
     Indication: Sclerotherapy
     Dosage: TIME INTERVAL: CYCLICAL: DOSE FORM: SOLUTION INTRAVENOUS
     Route: 065
  12. TRAMETINIB [Concomitant]
     Active Substance: TRAMETINIB
     Indication: Lymphangioma
     Route: 048
  13. TRAMETINIB [Concomitant]
     Active Substance: TRAMETINIB
     Indication: Lymphangioma
     Route: 048
  14. DOXYCYCLINE [Concomitant]
     Active Substance: DOXYCYCLINE
     Indication: Product used for unknown indication
     Dosage: DOSE FORM: NOT SPECIFIED
     Route: 065
  15. OCTREOTIDE [Concomitant]
     Active Substance: OCTREOTIDE
     Indication: Lymphangioma
     Dosage: DOSE FORM: NOT SPECIFIED
     Route: 065
  16. ETHIODIZED OIL [Concomitant]
     Active Substance: ETHIODIZED OIL
     Indication: Sclerotherapy
     Dosage: TIME INTERVAL: CYCLICAL
     Route: 065
  17. PREDNISONE [Concomitant]
     Active Substance: PREDNISONE
     Indication: Product used for unknown indication
     Dosage: DOSE FORM: NOT SPECIFIED
     Route: 065

REACTIONS (1)
  - Neuropathy peripheral [Unknown]
